FAERS Safety Report 14494665 (Version 1)
Quarter: 2018Q1

REPORT INFORMATION
  Report Type: Spontaneous
  Country: CN (occurrence: CN)
  Receive Date: 20180206
  Receipt Date: 20180206
  Transmission Date: 20180509
  Serious: Yes (Other)
  Sender: FDA-Public Use
  Company Number: PHHY2018CN013008

PATIENT
  Age: 20 Year
  Sex: Female

DRUGS (1)
  1. METHYLPREDNISOLONE. [Suspect]
     Active Substance: METHYLPREDNISOLONE
     Indication: MUSCULAR DYSTROPHY
     Dosage: 16 MG, QD
     Route: 048

REACTIONS (5)
  - Muscular dystrophy [Recovering/Resolving]
  - Gait disturbance [Recovering/Resolving]
  - Dysstasia [Recovering/Resolving]
  - Product use in unapproved indication [Unknown]
  - Condition aggravated [Recovering/Resolving]
